FAERS Safety Report 4848007-4 (Version None)
Quarter: 2005Q4

REPORT INFORMATION
  Report Type: 
  Country: None (occurrence: None)
  Receive Date: 20051206
  Receipt Date: 20051121
  Transmission Date: 20060501
  Serious: Yes (Hospitalization)
  Sender: FDA-Public Use
  Company Number: 12977

PATIENT
  Sex: Female

DRUGS (3)
  1. CYTARABINE [Suspect]
     Indication: ACUTE MYELOID LEUKAEMIA
     Dosage: 100 MG/M2 OTH TL
     Route: 064
  2. CYTARABINE [Suspect]
     Indication: ACUTE MYELOID LEUKAEMIA
     Dosage: 3 G/M2 OTH TL
     Route: 050
  3. IDARUBICIN HCL [Suspect]
     Indication: ACUTE MYELOID LEUKAEMIA
     Dosage: 12 MG/M2 DAILY TL
     Route: 064

REACTIONS (22)
  - APGAR SCORE LOW [None]
  - BACTERAEMIA [None]
  - BODY DYSMORPHIC DISORDER [None]
  - BONE MARROW FAILURE [None]
  - CAESAREAN SECTION [None]
  - COLON CANCER [None]
  - CONGENITAL NAIL DISORDER [None]
  - CYANOSIS [None]
  - DRUG EXPOSURE DURING PREGNANCY [None]
  - HEPATIC NEOPLASM [None]
  - LEUKAEMIA RECURRENT [None]
  - LIMB MALFORMATION [None]
  - MACROGNATHIA [None]
  - MONOCYTE COUNT INCREASED [None]
  - MUCOSAL INFLAMMATION [None]
  - PANCYTOPENIA [None]
  - PILONIDAL CYST CONGENITAL [None]
  - PLACENTAL DISORDER [None]
  - PSEUDOMONAS INFECTION [None]
  - SKULL MALFORMATION [None]
  - VENTRICULAR SEPTAL DEFECT [None]
  - WHITE BLOOD CELL COUNT INCREASED [None]
